FAERS Safety Report 23425828 (Version 1)
Quarter: 2024Q1

REPORT INFORMATION
  Report Type: Report from Study
  Country: US (occurrence: US)
  Receive Date: 20240122
  Receipt Date: 20240122
  Transmission Date: 20240410
  Serious: No
  Sender: FDA-Public Use
  Company Number: US-Accord-386101

PATIENT
  Sex: Female

DRUGS (1)
  1. CLOZAPINE [Suspect]
     Active Substance: CLOZAPINE
     Indication: Bipolar disorder
     Dosage: 200 MG BY MOUTH EACH NIGHT, 50 MG BY MOUTH DAILY
     Dates: end: 202306

REACTIONS (2)
  - Therapy cessation [Unknown]
  - Off label use [Unknown]
